FAERS Safety Report 5056120-4 (Version None)
Quarter: 2006Q3

REPORT INFORMATION
  Report Type: 
  Country: None (occurrence: None)
  Receive Date: 20060720
  Receipt Date: 20060420
  Transmission Date: 20061208
  Serious: Yes (Hospitalization)
  Sender: FDA-Public Use
  Company Number: CA-GLAXOSMITHKLINE-A0602737A

PATIENT
  Age: 92 Year
  Sex: Female
  Weight: 66 kg

DRUGS (4)
  1. PAXIL [Suspect]
     Indication: DEPRESSION
     Dosage: 20MG PER DAY
     Route: 048
     Dates: start: 20020101, end: 20060601
  2. AMIODARONE HCL [Suspect]
     Dosage: 200MG PER DAY
     Dates: start: 20050101, end: 20060101
  3. METOPROLOL [Concomitant]
     Dosage: 150MG PER DAY
     Dates: start: 20050101
  4. FUROSEMIDE [Concomitant]
     Dosage: 40MG PER DAY
     Dates: start: 20050801

REACTIONS (5)
  - ANGIOPLASTY [None]
  - ARRHYTHMIA [None]
  - CARDIAC DISORDER [None]
  - CARDIAC FAILURE CONGESTIVE [None]
  - PRURITUS [None]
